FAERS Safety Report 5772279-5 (Version None)
Quarter: 2008Q2

REPORT INFORMATION
  Report Type: 
  Country: None (occurrence: None)
  Receive Date: 20080613
  Receipt Date: 20080607
  Transmission Date: 20081010
  Serious: Yes (Other)
  Sender: FDA-Public Use
  Company Number: PHBS2007BR04857

PATIENT
  Sex: Male

DRUGS (2)
  1. DIOVAN [Suspect]
     Indication: HYPERTENSION
     Dosage: 160 MG, QD
     Route: 048
     Dates: start: 20070201
  2. ALOPURINOL [Concomitant]
     Indication: BLOOD URIC ACID INCREASED

REACTIONS (4)
  - ADENOCARCINOMA [None]
  - BIOPSY PROSTATE [None]
  - LITHOTRIPSY [None]
  - RADICAL PROSTATECTOMY [None]
